FAERS Safety Report 9591798 (Version 1)
Quarter: 2013Q4

REPORT INFORMATION
  Report Type: Spontaneous
  Country: US (occurrence: US)
  Receive Date: 20131004
  Receipt Date: 20131004
  Transmission Date: 20140711
  Serious: No
  Sender: FDA-Public Use
  Company Number: US-AMGEN-USASP2012083103

PATIENT
  Sex: Female

DRUGS (12)
  1. ENBREL [Suspect]
     Indication: PSORIATIC ARTHROPATHY
     Dosage: 50 MG, QWK
     Route: 058
  2. PROTONIX [Concomitant]
     Dosage: 40 MG, UNK
  3. PREMPRO [Concomitant]
     Dosage: .625-2.5
  4. BENADRYL                           /00000402/ [Concomitant]
     Dosage: 25 MG, UNK
  5. FLAXSEED OIL [Concomitant]
     Dosage: 1000 MG, UNK
  6. FISH OIL [Concomitant]
     Dosage: UNK
  7. VITAMIN D                          /00107901/ [Concomitant]
     Dosage: 1000 UNIT
  8. DICLOFENAC [Concomitant]
     Dosage: SOL O.1% OP
  9. CALCIUM [Concomitant]
     Dosage: 500 UNK, UNK
  10. FOLIC ACID [Concomitant]
     Dosage: 20 MG, UNK
  11. VITAMIN B-12 [Concomitant]
     Dosage: 1 MG, UNK
  12. VITAMIN E                          /00110501/ [Concomitant]
     Dosage: UNK

REACTIONS (6)
  - Dyspnoea [Unknown]
  - Cough [Unknown]
  - Injection site erythema [Unknown]
  - Injection site rash [Unknown]
  - Injection site reaction [Unknown]
  - Injection site induration [Unknown]
